FAERS Safety Report 16763985 (Version 1)
Quarter: 2019Q3

REPORT INFORMATION
  Report Type: Spontaneous
  Country: HU (occurrence: HU)
  Receive Date: 20190902
  Receipt Date: 20190902
  Transmission Date: 20191005
  Serious: Yes (Hospitalization, Other)
  Sender: FDA-Public Use
  Company Number: HU-009507513-1908HUN011582

PATIENT
  Age: 61 Year
  Sex: Female

DRUGS (1)
  1. KEYTRUDA [Suspect]
     Active Substance: PEMBROLIZUMAB
     Indication: METASTATIC MALIGNANT MELANOMA
     Dosage: UNK
     Dates: start: 201810, end: 20190214

REACTIONS (9)
  - Interstitial lung disease [Recovering/Resolving]
  - Pneumonia staphylococcal [Recovering/Resolving]
  - Hepatitis B core antibody positive [Recovered/Resolved]
  - Cutaneous vasculitis [Unknown]
  - Rheumatoid arthritis [Unknown]
  - Pneumonitis [Recovering/Resolving]
  - Tongue ulceration [Unknown]
  - Mouth ulceration [Unknown]
  - Cough [Unknown]

NARRATIVE: CASE EVENT DATE: 20190122
